FAERS Safety Report 7132511-2 (Version None)
Quarter: 2010Q4

REPORT INFORMATION
  Report Type: 
  Country: None (occurrence: None)
  Receive Date: 20101202
  Receipt Date: 20101117
  Transmission Date: 20110411
  Serious: Yes (Life-Threatening, Hospitalization, Other)
  Sender: FDA-Public Use
  Company Number: GB-ROCHE-744415

PATIENT

DRUGS (3)
  1. DACLIZUMAB [Suspect]
     Route: 065
  2. MYCOPHENOLATE MOFETIL [Suspect]
     Route: 065
  3. TACROLIMUS [Suspect]
     Indication: LIVER TRANSPLANT
     Route: 065

REACTIONS (5)
  - CONTINUOUS HAEMODIAFILTRATION [None]
  - HAEMORRHAGE [None]
  - RESPIRATORY DISORDER [None]
  - SPLENIC NECROSIS [None]
  - THROMBOSIS [None]
